FAERS Safety Report 7465539-3 (Version None)
Quarter: 2011Q2

REPORT INFORMATION
  Report Type: 
  Country: None (occurrence: None)
  Receive Date: 20110509
  Receipt Date: 20110502
  Transmission Date: 20111010
  Serious: Yes (Other)
  Sender: FDA-Public Use
  Company Number: FR-SANOFI-AVENTIS-2011SA019364

PATIENT
  Age: 74 Year

DRUGS (7)
  1. MULTAQ [Suspect]
     Route: 048
     Dates: start: 20110204, end: 20110310
  2. KARDEGIC [Concomitant]
  3. SOTALOL HCL [Concomitant]
  4. SECTRAL [Concomitant]
  5. EZETIMIBE [Concomitant]
  6. LEVOTHYROX [Concomitant]
     Indication: HYPOTHYROIDISM
  7. COAPROVEL [Concomitant]

REACTIONS (4)
  - HEPATITIS [None]
  - GAMMA-GLUTAMYLTRANSFERASE INCREASED [None]
  - HEPATITIS CHOLESTATIC [None]
  - ABDOMINAL PAIN UPPER [None]
